FAERS Safety Report 4759843-7 (Version None)
Quarter: 2005Q3

REPORT INFORMATION
  Report Type: 
  Country: None (occurrence: None)
  Receive Date: 20050831
  Receipt Date: 20050831
  Transmission Date: 20060218
  Serious: Yes (Hospitalization)
  Sender: FDA-Public Use
  Company Number: None

PATIENT
  Age: 58 Year
  Sex: Female

DRUGS (5)
  1. LORAZEPAM [Suspect]
     Dosage: PRN PO
     Route: 048
  2. TEMAZEPAM [Suspect]
     Dosage: PRN PO
     Route: 048
  3. FENTANYL [Concomitant]
  4. DURAGESIC-100 [Concomitant]
  5. MORPHINE [Concomitant]

REACTIONS (7)
  - AGITATION [None]
  - ASTHENIA [None]
  - DELIRIUM [None]
  - FALL [None]
  - HEPATIC ENZYME INCREASED [None]
  - INSOMNIA [None]
  - MENTAL STATUS CHANGES [None]
